FAERS Safety Report 6502453-1 (Version None)
Quarter: 2009Q4

REPORT INFORMATION
  Report Type: 
  Country: None (occurrence: None)
  Receive Date: 20091214
  Receipt Date: 20091209
  Transmission Date: 20100525
  Serious: Yes (Death)
  Sender: FDA-Public Use
  Company Number: 2009SP040386

PATIENT
  Age: 66 Year
  Sex: Female

DRUGS (4)
  1. PEG-INTRON [Suspect]
     Indication: HEPATITIS C
     Dosage: 1.5 MCG/KG;QW;SC
     Route: 058
  2. PEG-INTRON [Suspect]
     Indication: VASCULITIS
     Dosage: 1.5 MCG/KG;QW;SC
     Route: 058
  3. REBETOL [Suspect]
     Indication: HEPATITIS C
     Dosage: PO
     Route: 048
  4. REBETOL [Suspect]
     Indication: VASCULITIS
     Dosage: PO
     Route: 048

REACTIONS (1)
  - HEPATIC NEOPLASM MALIGNANT [None]
